FAERS Safety Report 9388263 (Version 2)
Quarter: 2013Q3

REPORT INFORMATION
  Report Type: Spontaneous
  Country: US (occurrence: US)
  Receive Date: 20130708
  Receipt Date: 20130808
  Transmission Date: 20140515
  Serious: Yes (Hospitalization, Other)
  Sender: FDA-Public Use
  Company Number: US-BRISTOL-MYERS SQUIBB COMPANY-19080928

PATIENT
  Age: 31 Year
  Sex: Male

DRUGS (10)
  1. ABILIFY INJECTION [Suspect]
     Indication: SCHIZOAFFECTIVE DISORDER
     Route: 030
     Dates: start: 20130604
  2. ABILIFY [Suspect]
     Indication: SCHIZOAFFECTIVE DISORDER
     Dosage: 10MG: UNK DATE
     Route: 048
     Dates: start: 20130603
  3. ZYPREXA [Suspect]
     Route: 065
  4. LUVOX [Suspect]
     Route: 065
     Dates: end: 201306
  5. RISPERDAL [Concomitant]
  6. TOPAMAX [Concomitant]
  7. LAMICTAL [Concomitant]
  8. SEROQUEL [Concomitant]
  9. KLONOPIN [Concomitant]
  10. AMBIEN [Concomitant]

REACTIONS (7)
  - Serotonin syndrome [Unknown]
  - Extrapyramidal disorder [Unknown]
  - Elevated mood [Unknown]
  - Insomnia [Unknown]
  - Dyspnoea [Unknown]
  - Vision blurred [Unknown]
  - Chest discomfort [Unknown]
